FAERS Safety Report 16258432 (Version 2)
Quarter: 2019Q2

REPORT INFORMATION
  Report Type: Report from Study
  Country: US (occurrence: US)
  Receive Date: 20190430
  Receipt Date: 20190628
  Transmission Date: 20190711
  Serious: No
  Sender: FDA-Public Use
  Company Number: PHEH2019US018038

PATIENT
  Sex: Male

DRUGS (1)
  1. ENTRESTO [Suspect]
     Active Substance: SACUBITRIL\VALSARTAN
     Indication: PRODUCT USED FOR UNKNOWN INDICATION
     Dosage: UNK, BID
     Route: 048

REACTIONS (7)
  - Nausea [Unknown]
  - Pain in extremity [Unknown]
  - Myalgia [Unknown]
  - Dehydration [Unknown]
  - Swelling [Unknown]
  - Vomiting [Unknown]
  - Cough [Unknown]
